FAERS Safety Report 6407872-X (Version None)
Quarter: 2009Q4

REPORT INFORMATION
  Report Type: 
  Country: None (occurrence: None)
  Receive Date: 20091020
  Receipt Date: 20091016
  Transmission Date: 20100525
  Serious: Yes (Death)
  Sender: FDA-Public Use
  Company Number: CI-GILEAD-2009-0024878

PATIENT
  Age: 45 Year
  Sex: Female
  Weight: 63 kg

DRUGS (9)
  1. TRUVADA [Suspect]
     Indication: HIV INFECTION
     Route: 048
     Dates: start: 20090819, end: 20090919
  2. EFAVIRENZ [Suspect]
     Indication: HIV INFECTION
     Dates: start: 20090819, end: 20090907
  3. LOPNIAVIR/RITONAVIR [Suspect]
     Indication: HIV INFECTION
     Dates: start: 20090916, end: 20090919
  4. SULFAMETHOXAZOLE AND TRIMETHOPRIM [Suspect]
     Dates: start: 20090819
  5. PARACETAMOL [Concomitant]
  6. METOPIMAZINE [Concomitant]
  7. CHLORPHENIRAMINE MALEATE [Concomitant]
  8. FERROUS SULFATE TAB [Concomitant]
  9. FOLIC ACID [Concomitant]

REACTIONS (2)
  - CHEST PAIN [None]
  - DYSPNOEA [None]
